FAERS Safety Report 22366707 (Version 1)
Quarter: 2023Q2

REPORT INFORMATION
  Report Type: Spontaneous
  Country: US (occurrence: US)
  Receive Date: 20230525
  Receipt Date: 20230525
  Transmission Date: 20230721
  Serious: Yes (Life-Threatening, Hospitalization)
  Sender: FDA-Public Use
  Company Number: US-STRIDES ARCOLAB LIMITED-2023SP007603

PATIENT
  Age: 48 Year
  Sex: Female

DRUGS (4)
  1. POTASSIUM CHLORIDE [Suspect]
     Active Substance: POTASSIUM CHLORIDE
     Indication: Product used for unknown indication
     Dosage: 1400 MEQ (EXTENDED-RELEASE, CONSUMED 1400 MEQ)
     Route: 048
  2. HYDROXYZINE HYDROCHLORIDE [Suspect]
     Active Substance: HYDROXYZINE HYDROCHLORIDE
     Indication: Product used for unknown indication
     Dosage: 500 MILLIGRAM (CONSUMED 500MG)
     Route: 065
  3. METOPROLOL [Suspect]
     Active Substance: METOPROLOL
     Indication: Product used for unknown indication
     Dosage: 500 MG (EXTENDED-RELEASE, CONSUMED 1400 MEQ,  )
     Route: 065
  4. RIVAROXABAN [Suspect]
     Active Substance: RIVAROXABAN
     Indication: Product used for unknown indication
     Dosage: 400 MILLIGRAM (EXTENDED-RELEASE, CONSUMED 1400 MEQ)
     Route: 065

REACTIONS (9)
  - Coagulopathy [Recovered/Resolved]
  - Cardiac arrest [Recovered/Resolved]
  - Intentional product misuse [Unknown]
  - Agitation [Recovered/Resolved]
  - Sinus rhythm [Recovered/Resolved]
  - Hypotension [Recovered/Resolved]
  - Hyperkalaemia [Recovered/Resolved]
  - Vomiting [Recovered/Resolved]
  - Intentional overdose [Unknown]
